FAERS Safety Report 9113878 (Version 1)
Quarter: 2013Q1

REPORT INFORMATION
  Report Type: Spontaneous
  Country: US (occurrence: US)
  Receive Date: 20130129
  Receipt Date: 20130129
  Transmission Date: 20140127
  Serious: No
  Sender: FDA-Public Use
  Company Number: US-009507513-1301USA009858

PATIENT
  Age: 64 Year
  Sex: Male

DRUGS (9)
  1. COSOPT PF [Suspect]
     Indication: GLAUCOMA
     Dosage: 2 DROPS, TWICE A DAY
     Route: 047
     Dates: start: 20121214, end: 20130114
  2. RESTASIS [Concomitant]
  3. NAFTIN CREAM [Concomitant]
  4. ACYCLOVIR [Concomitant]
  5. TOBRAMYCIN [Concomitant]
  6. MONTELUKAST SODIUM [Concomitant]
  7. GABAPENTIN [Concomitant]
  8. LEVOCETIRIZINE [Concomitant]
  9. LATANOPROST [Concomitant]

REACTIONS (2)
  - Oedema [Recovering/Resolving]
  - Drug hypersensitivity [Recovering/Resolving]
